FAERS Safety Report 24681578 (Version 1)
Quarter: 2024Q4

REPORT INFORMATION
  Report Type: Spontaneous
  Country: PT (occurrence: PT)
  Receive Date: 20241130
  Receipt Date: 20241130
  Transmission Date: 20250115
  Serious: Yes (Other)
  Sender: ALEXION PHARMACEUTICALS
  Company Number: None

PATIENT
  Age: 68 Year

DRUGS (18)
  1. DAPAGLIFLOZIN\METFORMIN HYDROCHLORIDE [Suspect]
     Active Substance: DAPAGLIFLOZIN\METFORMIN HYDROCHLORIDE
     Indication: Type 2 diabetes mellitus
     Dosage: 1000 + 5 MG (1+0+1)
  2. DAPAGLIFLOZIN\METFORMIN HYDROCHLORIDE [Suspect]
     Active Substance: DAPAGLIFLOZIN\METFORMIN HYDROCHLORIDE
     Dosage: 1000 + 5 MG (1+0+1)
  3. DAPAGLIFLOZIN\METFORMIN HYDROCHLORIDE [Suspect]
     Active Substance: DAPAGLIFLOZIN\METFORMIN HYDROCHLORIDE
     Dosage: 1000 + 5 MG (1+0+1)
  4. DAPAGLIFLOZIN\METFORMIN HYDROCHLORIDE [Suspect]
     Active Substance: DAPAGLIFLOZIN\METFORMIN HYDROCHLORIDE
     Dosage: 1000 + 5 MG (1+0+1)
  5. TRULICITY [Concomitant]
     Active Substance: DULAGLUTIDE
     Dosage: 1X/SEMANA
  6. TRULICITY [Concomitant]
     Active Substance: DULAGLUTIDE
     Dosage: 1X/SEMANA
  7. FEBUXOSTAT [Concomitant]
     Active Substance: FEBUXOSTAT
     Dosage: 80 MILLIGRAM
  8. FEBUXOSTAT [Concomitant]
     Active Substance: FEBUXOSTAT
     Dosage: 80 MILLIGRAM
     Route: 065
  9. AZILSARTAN KAMEDOXOMIL\CHLORTHALIDONE [Concomitant]
     Active Substance: AZILSARTAN KAMEDOXOMIL\CHLORTHALIDONE
     Dosage: 40/25MG (1+0+0)
  10. AZILSARTAN KAMEDOXOMIL\CHLORTHALIDONE [Concomitant]
     Active Substance: AZILSARTAN KAMEDOXOMIL\CHLORTHALIDONE
     Dosage: 40/25MG (1+0+0)
  11. ROSUVASTATIN [Concomitant]
     Active Substance: ROSUVASTATIN
     Dosage: 20/10MG 0+0+1
  12. ROSUVASTATIN [Concomitant]
     Active Substance: ROSUVASTATIN
     Dosage: 20/10MG 0+0+1
  13. NEUROBION [Concomitant]
     Active Substance: CYANOCOBALAMIN\PYRIDOXINE\THIAMINE
     Dosage: 1+0+1
  14. NEUROBION [Concomitant]
     Active Substance: CYANOCOBALAMIN\PYRIDOXINE\THIAMINE
     Dosage: 1+0+1
  15. GLICLAZIDE [Concomitant]
     Active Substance: GLICLAZIDE
     Dosage: 60 MG 1+0+0
  16. GLICLAZIDE [Concomitant]
     Active Substance: GLICLAZIDE
     Dosage: 60 MG 1+0+0
  17. EZETIMIBE [Concomitant]
     Active Substance: EZETIMIBE
  18. EZETIMIBE [Concomitant]
     Active Substance: EZETIMIBE
     Route: 065

REACTIONS (2)
  - Condition aggravated [Recovered/Resolved]
  - Chronic kidney disease [Recovered/Resolved]
